FAERS Safety Report 16065217 (Version 1)
Quarter: 2019Q1

REPORT INFORMATION
  Report Type: Other
  Country: ES (occurrence: ES)
  Receive Date: 20190313
  Receipt Date: 20190313
  Transmission Date: 20190418
  Serious: Yes (Other)
  Sender: FDA-Public Use
  Company Number: ES-DENTSPLY-2019SCDP000134

PATIENT
  Age: 53 Year
  Sex: Female

DRUGS (1)
  1. MEPIVACAINE HCL [Suspect]
     Active Substance: MEPIVACAINE\MEPIVACAINE HYDROCHLORIDE
     Indication: PRODUCT USED FOR UNKNOWN INDICATION
     Dosage: UNK
     Route: 014
     Dates: start: 20171129, end: 20171129

REACTIONS (2)
  - Documented hypersensitivity to administered product [Recovered/Resolved]
  - Dysphagia [Recovered/Resolved]

NARRATIVE: CASE EVENT DATE: 20171129
